FAERS Safety Report 13844094 (Version 1)
Quarter: 2017Q3

REPORT INFORMATION
  Report Type: Report from Study
  Country: US (occurrence: US)
  Receive Date: 20170808
  Receipt Date: 20170808
  Transmission Date: 20171127
  Serious: Yes (Hospitalization)
  Sender: FDA-Public Use
  Company Number: US-VIFOR (INTERNATIONAL) INC.-VIT-2017-08281

PATIENT
  Age: 92 Year
  Sex: Male

DRUGS (11)
  1. FLOMAX [Concomitant]
     Active Substance: TAMSULOSIN HYDROCHLORIDE
  2. COLACE [Concomitant]
     Active Substance: DOCUSATE SODIUM
  3. WARFARIN [Concomitant]
     Active Substance: WARFARIN
  4. OMEPRAZOLE. [Concomitant]
     Active Substance: OMEPRAZOLE
  5. CARVEDILOL. [Concomitant]
     Active Substance: CARVEDILOL
  6. SODIUM CARBONATE ANHYDROUS [Concomitant]
  7. ASCORBIC ACID. [Concomitant]
     Active Substance: ASCORBIC ACID
  8. LUMIGAN [Concomitant]
     Active Substance: BIMATOPROST
  9. PROAIR HFA [Concomitant]
     Active Substance: ALBUTEROL SULFATE
  10. FINASTERIDE. [Concomitant]
     Active Substance: FINASTERIDE
  11. VELTASSA [Suspect]
     Active Substance: PATIROMER
     Indication: HYPERKALAEMIA
     Route: 048
     Dates: start: 20160928

REACTIONS (1)
  - Cardiac failure congestive [Recovered/Resolved]

NARRATIVE: CASE EVENT DATE: 201707
